FAERS Safety Report 11389172 (Version 1)
Quarter: 2015Q3

REPORT INFORMATION
  Report Type: Spontaneous
  Country: US (occurrence: US)
  Receive Date: 20150817
  Receipt Date: 20150817
  Transmission Date: 20151125
  Serious: Yes (Hospitalization, Other)
  Sender: FDA-Public Use
  Company Number: US-DYAX CORP.-2015DX000357

PATIENT
  Sex: Female
  Weight: 72.64 kg

DRUGS (3)
  1. KALBITOR [Suspect]
     Active Substance: ECALLANTIDE
     Route: 065
  2. FIRAZYR [Concomitant]
     Active Substance: ICATIBANT ACETATE
     Indication: HEREDITARY ANGIOEDEMA
  3. KALBITOR [Suspect]
     Active Substance: ECALLANTIDE
     Indication: HEREDITARY ANGIOEDEMA
     Route: 065
     Dates: start: 20150520, end: 20150520

REACTIONS (2)
  - Hereditary angioedema [Recovered/Resolved]
  - Intestinal obstruction [Recovered/Resolved]

NARRATIVE: CASE EVENT DATE: 2015
